FAERS Safety Report 25521957 (Version 2)
Quarter: 2025Q4

REPORT INFORMATION
  Report Type: Report from Study
  Country: US (occurrence: US)
  Receive Date: 20250706
  Receipt Date: 20251112
  Transmission Date: 20260117
  Serious: Yes (Hospitalization, Other)
  Sender: ABBVIE
  Company Number: US-ABBVIE-6353352

PATIENT
  Age: 80 Year
  Sex: Female

DRUGS (2)
  1. UBRELVY [Suspect]
     Active Substance: UBROGEPANT
     Indication: Headache
     Route: 048
     Dates: start: 2022
  2. UBRELVY [Suspect]
     Active Substance: UBROGEPANT
     Indication: Headache
     Route: 048

REACTIONS (4)
  - Cerebrovascular accident [Unknown]
  - Arrhythmia [Recovered/Resolved]
  - Headache [Unknown]
  - Cerebrovascular accident [Recovered/Resolved]

NARRATIVE: CASE EVENT DATE: 20230101
